FAERS Safety Report 14977545 (Version 3)
Quarter: 2018Q3

REPORT INFORMATION
  Report Type: Spontaneous
  Country: US (occurrence: US)
  Receive Date: 20180606
  Receipt Date: 20180808
  Transmission Date: 20181010
  Serious: Yes (Other)
  Sender: FDA-Public Use
  Company Number: US-ASTRAZENECA-2018SE71464

PATIENT
  Age: 16734 Day
  Sex: Female
  Weight: 103.9 kg

DRUGS (5)
  1. SOLU?MEDROL [Concomitant]
     Active Substance: METHYLPREDNISOLONE SODIUM SUCCINATE
     Route: 030
     Dates: start: 20180525
  2. PEPCID [Concomitant]
     Active Substance: FAMOTIDINE
     Route: 048
  3. ADRENALIN [Concomitant]
     Active Substance: EPINEPHRINE
     Route: 057
     Dates: start: 20180525
  4. FASENRA [Suspect]
     Active Substance: BENRALIZUMAB
     Indication: ASTHMA
     Route: 058
     Dates: start: 20180525, end: 20180525
  5. DIPHENHYDRAMINE. [Concomitant]
     Active Substance: DIPHENHYDRAMINE
     Indication: HYPERSENSITIVITY
     Dosage: 1 CAPSULE EVERY 8 HOPURS AS NEEDED
     Route: 048

REACTIONS (3)
  - Hypersensitivity [Unknown]
  - Rash pruritic [Recovered/Resolved]
  - Throat tightness [Unknown]

NARRATIVE: CASE EVENT DATE: 20180525
